FAERS Safety Report 9843622 (Version 2)
Quarter: 2013Q4

REPORT INFORMATION
  Report Type: Spontaneous
  Country: US (occurrence: None)
  Receive Date: 20131223
  Receipt Date: 20131223
  Transmission Date: 20140711
  Serious: Yes (Other)
  Sender: FDA-Public Use
  Company Number: 217226LEO

PATIENT
  Age: 58 Year
  Sex: Female

DRUGS (1)
  1. PICATO (0.015 %, GEL) [Suspect]
     Indication: ACTINIC KERATOSIS
     Route: 061

REACTIONS (6)
  - Blister [None]
  - Scab [None]
  - Application site pain [None]
  - Chapped lips [None]
  - Application site exfoliation [None]
  - Erythema [None]
